FAERS Safety Report 7260136-7 (Version None)
Quarter: 2011Q1

REPORT INFORMATION
  Report Type: 
  Country: None (occurrence: None)
  Receive Date: 20110130
  Receipt Date: 20101007
  Transmission Date: 20110831
  Serious: No
  Sender: FDA-Public Use
  Company Number: US-ABBOTT-10P-163-0676612-00

PATIENT
  Age: 65 Year
  Sex: Female

DRUGS (6)
  1. LOVAZA [Concomitant]
     Indication: PRODUCT USED FOR UNKNOWN INDICATION
  2. HUMIRA [Suspect]
     Indication: RHEUMATOID ARTHRITIS
     Dates: start: 20100501
  3. THYROID TAB [Concomitant]
     Indication: HYPOTHYROIDISM
  4. MULTIVIT [Concomitant]
     Indication: PRODUCT USED FOR UNKNOWN INDICATION
  5. CALCIUM +VIT D [Concomitant]
     Indication: PRODUCT USED FOR UNKNOWN INDICATION
  6. CLONOPIN [Concomitant]
     Indication: INSOMNIA

REACTIONS (3)
  - PRURITUS [None]
  - NODULE [None]
  - FEELING HOT [None]
